FAERS Safety Report 6266531-7 (Version None)
Quarter: 2009Q3

REPORT INFORMATION
  Report Type: 
  Country: None (occurrence: None)
  Receive Date: 20090710
  Receipt Date: 20090625
  Transmission Date: 20100115
  Serious: Yes (Life-Threatening, Hospitalization)
  Sender: FDA-Public Use
  Company Number: 2009SP001661

PATIENT
  Sex: Female

DRUGS (3)
  1. ALVESCO [Suspect]
     Indication: WHEEZING
     Dosage: INHALATION
     Route: 055
     Dates: start: 20090601
  2. CON MEDS [Concomitant]
  3. PREV MEDS [Concomitant]

REACTIONS (3)
  - DYSPNOEA [None]
  - FALL [None]
  - HYPERSENSITIVITY [None]
